FAERS Safety Report 11581253 (Version 3)
Quarter: 2015Q4

REPORT INFORMATION
  Report Type: Spontaneous
  Country: US (occurrence: US)
  Receive Date: 20151001
  Receipt Date: 20151120
  Transmission Date: 20160304
  Serious: Yes (Hospitalization)
  Sender: FDA-Public Use
  Company Number: US-HOSPIRA-3019940

PATIENT
  Age: 46 Year
  Sex: Male
  Weight: 81.82 kg

DRUGS (28)
  1. NEUPOGEN [Concomitant]
     Active Substance: FILGRASTIM
     Indication: NEUTROPENIA
     Route: 058
     Dates: start: 20150824, end: 20150824
  2. AUGMENTIN [Concomitant]
     Active Substance: AMOXICILLIN\CLAVULANATE POTASSIUM
     Indication: STOMATITIS
     Route: 048
     Dates: start: 20150819, end: 20150825
  3. NEUPOGEN [Concomitant]
     Active Substance: FILGRASTIM
     Indication: NEUTROPENIA
     Route: 058
     Dates: start: 20150820, end: 20150821
  4. MAGNESIUM [Concomitant]
     Active Substance: MAGNESIUM
     Indication: BLOOD MAGNESIUM DECREASED
     Route: 042
     Dates: start: 20150911, end: 20150911
  5. LEVOTHYROXINE. [Concomitant]
     Active Substance: LEVOTHYROXINE
     Indication: HYPOTHYROIDISM
     Route: 048
     Dates: start: 20150630
  6. CARVEDILOL. [Concomitant]
     Active Substance: CARVEDILOL
     Indication: CARDIAC FAILURE CONGESTIVE
     Route: 048
     Dates: start: 20150617
  7. OMEPRAZOLE. [Concomitant]
     Active Substance: OMEPRAZOLE
     Indication: GASTROOESOPHAGEAL REFLUX DISEASE
     Route: 048
     Dates: start: 20150630
  8. SIMVASTATIN. [Concomitant]
     Active Substance: SIMVASTATIN
     Indication: HYPERLIPIDAEMIA
     Route: 048
     Dates: start: 20150630
  9. VITAMIN B12 [Concomitant]
     Active Substance: CYANOCOBALAMIN
     Indication: VITAMIN SUPPLEMENTATION
     Route: 048
     Dates: start: 20150630
  10. NORCO [Concomitant]
     Active Substance: ACETAMINOPHEN\HYDROCODONE BITARTRATE
     Indication: CANCER PAIN
     Dosage: 10/325 (UOM NOT REPORTED)
     Route: 048
     Dates: start: 20150819
  11. INVESTIGATIONAL DRUG [Concomitant]
     Active Substance: INVESTIGATIONAL PRODUCT
     Indication: NON-SMALL CELL LUNG CANCER
     Dosage: 15 MG/M2, EVERY 21 DAYS
     Route: 042
     Dates: start: 20150716
  12. LISINOPRIL. [Concomitant]
     Active Substance: LISINOPRIL
     Indication: CARDIAC FAILURE CONGESTIVE
     Route: 048
     Dates: start: 20150630
  13. NORMAL SALINE [Concomitant]
     Active Substance: SODIUM CHLORIDE
     Indication: STOMATITIS
     Route: 042
     Dates: start: 20150819, end: 20150819
  14. MULTIVITAMIN                       /00097801/ [Concomitant]
     Active Substance: VITAMINS
     Indication: VITAMIN SUPPLEMENTATION
     Route: 048
     Dates: start: 20150630
  15. IBUPROFEN. [Concomitant]
     Active Substance: IBUPROFEN
     Indication: CANCER PAIN
     Route: 048
     Dates: start: 20150813, end: 20150918
  16. PAXIL [Concomitant]
     Active Substance: PAROXETINE HYDROCHLORIDE
     Indication: DEPRESSION
     Route: 048
     Dates: start: 20150630
  17. ASPIRIN                            /00002701/ [Concomitant]
     Active Substance: ASPIRIN
     Indication: CARDIOVASCULAR EVENT PROPHYLAXIS
     Route: 048
     Dates: start: 20150703, end: 20150918
  18. CARBOPLATIN. [Suspect]
     Active Substance: CARBOPLATIN
     Indication: NON-SMALL CELL LUNG CANCER
     Dosage: AUC 5
     Route: 042
     Dates: start: 20150716
  19. ACETAMINOPHEN. [Concomitant]
     Active Substance: ACETAMINOPHEN
     Indication: CANCER PAIN
     Route: 048
     Dates: start: 20150630, end: 20150813
  20. FISH OIL [Concomitant]
     Active Substance: FISH OIL
     Indication: CARDIOVASCULAR EVENT PROPHYLAXIS
     Route: 048
     Dates: start: 20150630
  21. DEXAMETHASONE. [Concomitant]
     Active Substance: DEXAMETHASONE
     Indication: STOMATITIS
     Route: 042
     Dates: start: 20150819, end: 20150819
  22. TAXOL [Suspect]
     Active Substance: PACLITAXEL
     Indication: NON-SMALL CELL LUNG CANCER
     Dosage: 175 MG/M2
     Route: 042
     Dates: start: 20150716
  23. FUROSEMIDE. [Concomitant]
     Active Substance: FUROSEMIDE
     Indication: PLEURAL EFFUSION
     Route: 048
     Dates: start: 20150630
  24. DEXAMETHASONE. [Concomitant]
     Active Substance: DEXAMETHASONE
     Indication: PROPHYLACTIC CHEMOTHERAPY
     Route: 048
     Dates: start: 20150716
  25. ZOFRAN [Concomitant]
     Active Substance: ONDANSETRON HYDROCHLORIDE
     Indication: PROPHYLAXIS OF NAUSEA AND VOMITING
     Route: 048
     Dates: start: 20150716
  26. MAGIC MOUTHWASH [Concomitant]
     Active Substance: DIPHENHYDRAMINE HYDROCHLORIDE\LIDOCAINE HYDROCHLORIDE\NYSTATIN
     Indication: STOMATITIS
     Route: 048
     Dates: start: 20150818
  27. KLONOPIN [Concomitant]
     Active Substance: CLONAZEPAM
     Indication: ANXIETY
     Route: 048
     Dates: start: 20150630
  28. NORCO [Concomitant]
     Active Substance: ACETAMINOPHEN\HYDROCODONE BITARTRATE
     Indication: PLEURITIC PAIN
     Dosage: 10/325 (UOM NOT REPORTED)
     Route: 048
     Dates: start: 20150819

REACTIONS (2)
  - Rectal haemorrhage [Recovered/Resolved]
  - Pancytopenia [Recovered/Resolved]

NARRATIVE: CASE EVENT DATE: 20150917
